FAERS Safety Report 12212429 (Version 1)
Quarter: 2016Q1

REPORT INFORMATION
  Report Type: Spontaneous
  Country: IR (occurrence: IR)
  Receive Date: 20160326
  Receipt Date: 20160326
  Transmission Date: 20160526
  Serious: Yes (Other)
  Sender: FDA-Public Use
  Company Number: IR-ALKEM-001537

PATIENT
  Age: 48 Year
  Sex: Male

DRUGS (5)
  1. MAPROTILINE [Concomitant]
     Active Substance: MAPROTILINE
     Dosage: AT BEDTIME, PRESCRIBED FOR THE SECOND ADMISSION
  2. OMEPRAZOLE. [Concomitant]
     Active Substance: OMEPRAZOLE
  3. CITALOPRAM [Concomitant]
     Active Substance: CITALOPRAM HYDROBROMIDE
     Dosage: AT BEDTIME, PRESCRIBED FOR THE SECOND ADMISSION
  4. GABAPENTIN. [Suspect]
     Active Substance: GABAPENTIN
     Indication: PRODUCT USED FOR UNKNOWN INDICATION
     Dosage: AT BEDTIME, PRESCRIBED FOR THE SECOND ADMISSION
  5. ALPRAZOLAM. [Concomitant]
     Active Substance: ALPRAZOLAM
     Dosage: PRESCRIBED FOR THE SECOND ADMISSION

REACTIONS (5)
  - Localised oedema [Recovered/Resolved]
  - Hyperaesthesia [Unknown]
  - Product substitution issue [Unknown]
  - Neuralgia [Recovered/Resolved]
  - Skin exfoliation [Unknown]
